FAERS Safety Report 23943321 (Version 1)
Quarter: 2024Q2

REPORT INFORMATION
  Report Type: Spontaneous
  Country: US (occurrence: US)
  Receive Date: 20240605
  Receipt Date: 20240605
  Transmission Date: 20240716
  Serious: No
  Sender: FDA-Public Use
  Company Number: US-IOVANCE BIOTHERAPEUTICS, INC-2024IOV000024

PATIENT

DRUGS (1)
  1. AMTAGVI [Suspect]
     Active Substance: LIFILEUCEL
     Indication: Malignant melanoma
     Dosage: UNK
     Route: 042
     Dates: start: 20240429, end: 20240429

REACTIONS (1)
  - Pyrexia [Recovered/Resolved]

NARRATIVE: CASE EVENT DATE: 20240501
